FAERS Safety Report 3970137 (Version 6)
Quarter: 2014Q2

REPORT INFORMATION
  Report Type: Spontaneous
  Country: US (occurrence: US)
  Receive Date: 20030717
  Receipt Date: 20140516
  Transmission Date: 20141212
  Serious: Yes (Death, Hospitalization)
  Sender: FDA-Public Use
  Company Number: US-GLAXOSMITHKLINE-A0416701A

PATIENT
  Age: 28 Year
  Sex: Male

DRUGS (4)
  1. AVANDAMET [Suspect]
     Indication: TYPE 2 DIABETES MELLITUS
     Route: 048
     Dates: start: 20030501, end: 20030522
  2. AVANDIA [Suspect]
     Indication: TYPE 2 DIABETES MELLITUS
     Route: 065
  3. BLOOD PRESSURE MEDICATION [Concomitant]
  4. ANTIBIOTIC [Concomitant]
     Indication: EAR PAIN

REACTIONS (9)
  - Diabetes mellitus [Fatal]
  - Pancreatitis acute [Not Recovered/Not Resolved]
  - Diabetic coma [Recovered/Resolved]
  - Fatigue [Not Recovered/Not Resolved]
  - Mental impairment [Recovered/Resolved]
  - Aphasia [Recovered/Resolved]
  - Blood glucose increased [Recovered/Resolved]
  - pH body fluid abnormal [Unknown]
  - Malaise [Unknown]
